FAERS Safety Report 7983695-5 (Version None)
Quarter: 2011Q4

REPORT INFORMATION
  Report Type: 
  Country: None (occurrence: None)
  Receive Date: 20111215
  Receipt Date: 20111209
  Transmission Date: 20120403
  Serious: Yes (Hospitalization, Disabling)
  Sender: FDA-Public Use
  Company Number: JP-MERCK-1111USA02608

PATIENT
  Age: 80 Year
  Sex: Female
  Weight: 40 kg

DRUGS (2)
  1. PREDNISOLONE [Concomitant]
     Route: 048
     Dates: start: 20070303
  2. FOSAMAX [Suspect]
     Route: 048
     Dates: start: 20070301, end: 20110903

REACTIONS (4)
  - OSTEOMYELITIS [None]
  - OSTEONECROSIS OF JAW [None]
  - JAW FRACTURE [None]
  - EATING DISORDER [None]
